FAERS Safety Report 5771433-6 (Version None)
Quarter: 2008Q2

REPORT INFORMATION
  Report Type: 
  Country: None (occurrence: None)
  Receive Date: 20080613
  Receipt Date: 20080610
  Transmission Date: 20081010
  Serious: Yes (Hospitalization)
  Sender: FDA-Public Use
  Company Number: PHHO2008DE06570

PATIENT
  Sex: Male
  Weight: 81 kg

DRUGS (4)
  1. SANDIMMUNE [Suspect]
     Dosage: 275 MG, BID
     Route: 048
     Dates: start: 20080327
  2. SANDIMMUNE [Suspect]
     Dosage: UNKNOWN
  3. MYFORTIC [Suspect]
     Indication: RENAL TRANSPLANT
     Dosage: 1440 MG, BID
     Route: 048
     Dates: start: 20080327
  4. NO TREATMENT RECEIVED NOMED [Suspect]
     Indication: RENAL TRANSPLANT
     Dosage: UNK

REACTIONS (2)
  - BLOOD CREATININE INCREASED [None]
  - THERAPEUTIC AGENT TOXICITY [None]
